FAERS Safety Report 18727243 (Version 4)
Quarter: 2023Q4

REPORT INFORMATION
  Report Type: Spontaneous
  Country: US (occurrence: None)
  Receive Date: 20210111
  Receipt Date: 20231219
  Transmission Date: 20240110
  Serious: No
  Sender: FDA-Public Use
  Company Number: US-ROCHE-2639981

PATIENT
  Age: 59 Year
  Sex: Male
  Weight: 89 kg

DRUGS (11)
  1. HEMLIBRA [Suspect]
     Active Substance: EMICIZUMAB-KXWH
     Indication: Factor VIII deficiency
     Dosage: HEMLIBRA SDV 150MG/ML
     Route: 058
     Dates: start: 20200521
  2. HEMLIBRA [Suspect]
     Active Substance: EMICIZUMAB-KXWH
     Indication: Essential hypertension
     Dosage: HEMLIBRA SDV 60 MG/ 0.4 ML
     Route: 058
     Dates: start: 20200521
  3. HEMLIBRA [Suspect]
     Active Substance: EMICIZUMAB-KXWH
     Indication: HIV infection
     Dosage: HEMLIBRA SDV 150 MG/ML
     Route: 058
     Dates: start: 20200521
  4. HEMLIBRA [Suspect]
     Active Substance: EMICIZUMAB-KXWH
     Indication: Haemophilia
     Route: 058
     Dates: start: 20200521
  5. HEMLIBRA [Suspect]
     Active Substance: EMICIZUMAB-KXWH
     Route: 058
     Dates: start: 20200521
  6. HEMLIBRA [Suspect]
     Active Substance: EMICIZUMAB-KXWH
     Dosage: FORM STRENGTH: 150 MG/ML
     Route: 058
     Dates: start: 20200521
  7. HEMLIBRA [Suspect]
     Active Substance: EMICIZUMAB-KXWH
     Dosage: STRENGTH 150 MG/ML
     Route: 058
     Dates: start: 20210520
  8. HEMLIBRA [Suspect]
     Active Substance: EMICIZUMAB-KXWH
     Route: 058
     Dates: start: 20200318
  9. HEMLIBRA [Suspect]
     Active Substance: EMICIZUMAB-KXWH
     Route: 058
     Dates: start: 20201130
  10. HEMLIBRA [Suspect]
     Active Substance: EMICIZUMAB-KXWH
     Dosage: NEXT DOSE DUE ON 26/APR/2022, FORM STRENGTH 150 MG/ML
     Route: 058
     Dates: start: 202012
  11. HEMLIBRA [Suspect]
     Active Substance: EMICIZUMAB-KXWH
     Route: 058
     Dates: start: 20200520

REACTIONS (5)
  - Haemorrhage [Recovered/Resolved]
  - Haemorrhage [Recovered/Resolved]
  - Skin laceration [Recovered/Resolved]
  - Back pain [Unknown]
  - Peripheral swelling [Unknown]

NARRATIVE: CASE EVENT DATE: 20200702
